FAERS Safety Report 11830342 (Version 3)
Quarter: 2015Q4

REPORT INFORMATION
  Report Type: Spontaneous
  Country: US (occurrence: US)
  Receive Date: 20151214
  Receipt Date: 20151214
  Transmission Date: 20160305
  Serious: No
  Sender: FDA-Public Use
  Company Number: US-JNJFOC-20150310051

PATIENT
  Age: 68 Year
  Sex: Male
  Weight: 105 kg

DRUGS (8)
  1. FLUTICASONE [Concomitant]
     Active Substance: FLUTICASONE\FLUTICASONE PROPIONATE
     Indication: MULTIPLE ALLERGIES
     Route: 065
  2. MUCINEX [Concomitant]
     Active Substance: GUAIFENESIN
     Indication: SINUS DISORDER
     Route: 065
  3. LEVAQUIN [Suspect]
     Active Substance: LEVOFLOXACIN
     Indication: SINUSITIS
     Route: 048
     Dates: start: 20130101, end: 20130129
  4. POTASSIUM [Concomitant]
     Active Substance: POTASSIUM
     Route: 065
  5. LEVAQUIN [Suspect]
     Active Substance: LEVOFLOXACIN
     Indication: SINUSITIS
     Route: 048
     Dates: start: 20130115
  6. LISINOPRIL. [Concomitant]
     Active Substance: LISINOPRIL
     Indication: HYPERTENSION
     Route: 065
  7. METOLAZONE. [Concomitant]
     Active Substance: METOLAZONE
     Indication: HYPERTENSION
     Route: 065
  8. CHONDROITIN [Concomitant]
     Active Substance: CHONDROITIN
     Indication: ARTHRALGIA
     Route: 065

REACTIONS (7)
  - Hypoaesthesia [Recovered/Resolved]
  - Red blood cell sedimentation rate [Unknown]
  - Drug hypersensitivity [Unknown]
  - Limb discomfort [Recovered/Resolved]
  - Tendonitis [Recovered/Resolved]
  - Pain in extremity [Recovered/Resolved]
  - C-reactive protein increased [Unknown]

NARRATIVE: CASE EVENT DATE: 2013
